FAERS Safety Report 5530000-X (Version None)
Quarter: 2007Q4

REPORT INFORMATION
  Report Type: 
  Country: None (occurrence: None)
  Receive Date: 20071127
  Receipt Date: 20071115
  Transmission Date: 20080405
  Serious: Yes (Hospitalization)
  Sender: FDA-Public Use
  Company Number: GXKR2007US09829

PATIENT
  Age: 56 Year
  Sex: Female

DRUGS (1)
  1. METOPROLOL (NGX)(METOPROLOL) EXTENDED RELEASE TABLET [Suspect]
     Dosage: 100 MG/DAY

REACTIONS (8)
  - BRADYCARDIA [None]
  - CHEST DISCOMFORT [None]
  - CORONARY ARTERY DISEASE [None]
  - CORONARY ARTERY STENOSIS [None]
  - DRUG WITHDRAWAL SYNDROME [None]
  - ELECTROCARDIOGRAM ST SEGMENT ELEVATION [None]
  - LEFT VENTRICULAR DYSFUNCTION [None]
  - STRESS CARDIOMYOPATHY [None]
